FAERS Safety Report 21185515 (Version 1)
Quarter: 2022Q3

REPORT INFORMATION
  Report Type: Spontaneous
  Country: FR (occurrence: FR)
  Receive Date: 20220808
  Receipt Date: 20220808
  Transmission Date: 20221026
  Serious: Yes (Hospitalization)
  Sender: FDA-Public Use
  Company Number: None

PATIENT
  Age: 7 Year
  Sex: Male

DRUGS (1)
  1. VORICONAZOLE [Suspect]
     Active Substance: VORICONAZOLE
     Indication: Infection prophylaxis
     Dosage: UNK
     Dates: start: 20220706

REACTIONS (1)
  - Resting tremor [Not Recovered/Not Resolved]

NARRATIVE: CASE EVENT DATE: 20220706
